FAERS Safety Report 10565341 (Version 1)
Quarter: 2014Q4

REPORT INFORMATION
  Report Type: Report from Study
  Country: BR (occurrence: BR)
  Receive Date: 20141105
  Receipt Date: 20141105
  Transmission Date: 20150529
  Serious: Yes (Death, Hospitalization, Other)
  Sender: FDA-Public Use
  Company Number: PHHY2014BR142774

PATIENT
  Age: 81 Year
  Sex: Female
  Weight: 80 kg

DRUGS (4)
  1. DIPYRONE [Concomitant]
     Active Substance: DIPYRONE
     Indication: PAIN
     Dosage: UNK
     Route: 065
  2. EXELON PATCH [Suspect]
     Active Substance: RIVASTIGMINE
     Indication: MEMORY IMPAIRMENT
     Dosage: 4.6 MG, QD (5 CM)
     Route: 062
     Dates: start: 201403, end: 201409
  3. GLIFAGE [Concomitant]
     Active Substance: METFORMIN HYDROCHLORIDE
     Indication: DIABETES MELLITUS
     Dosage: 2 DF, QD
     Route: 065
  4. EBIX [Concomitant]
     Active Substance: MEMANTINE HYDROCHLORIDE
     Indication: MEMORY IMPAIRMENT
     Dosage: 1 DF, QD
     Route: 065

REACTIONS (10)
  - Respiratory failure [Fatal]
  - Lung infection [Unknown]
  - Pyrexia [Unknown]
  - Metastases to liver [Unknown]
  - Dysphagia [Unknown]
  - Neoplasm [Fatal]
  - Renal failure [Fatal]
  - Condition aggravated [Unknown]
  - Metastases to lung [Unknown]
  - Urinary tract infection [Unknown]

NARRATIVE: CASE EVENT DATE: 201409
